FAERS Safety Report 23078523 (Version 1)
Quarter: 2023Q4

REPORT INFORMATION
  Report Type: Spontaneous
  Country: US (occurrence: None)
  Receive Date: 20231016
  Receipt Date: 20231016
  Transmission Date: 20240110
  Serious: Yes (Other)
  Sender: FDA-Public Use
  Company Number: None

PATIENT
  Age: 41 Year
  Sex: Female
  Weight: 99.3 kg

DRUGS (2)
  1. PALIPERIDONE [Suspect]
     Active Substance: PALIPERIDONE
     Indication: Schizophrenia
     Dosage: FREQUENCY : WEEKLY;?
     Route: 030
     Dates: start: 20230322, end: 20230901
  2. INVEGA SUSTENNA [Concomitant]
     Active Substance: PALIPERIDONE PALMITATE
     Dates: start: 20230322, end: 20230901

REACTIONS (4)
  - Chest discomfort [None]
  - Heart rate increased [None]
  - Injection site mass [None]
  - Throat tightness [None]

NARRATIVE: CASE EVENT DATE: 20230818
